FAERS Safety Report 4973501-5 (Version None)
Quarter: 2006Q2

REPORT INFORMATION
  Report Type: 
  Country: None (occurrence: None)
  Receive Date: 20060407
  Receipt Date: 20060216
  Transmission Date: 20061013
  Serious: Yes (Hospitalization)
  Sender: FDA-Public Use
  Company Number: STA-AE-06-007

PATIENT
  Age: 53 Year
  Sex: Male

DRUGS (1)
  1. LORAZEPAM [Suspect]
     Indication: SEDATIVE THERAPY
     Dosage: 2166MG IV OVER 7 DAYS

REACTIONS (5)
  - BLOOD BICARBONATE DECREASED [None]
  - BLOOD CREATININE INCREASED [None]
  - SEPSIS [None]
  - THERAPY NON-RESPONDER [None]
  - URINE OUTPUT DECREASED [None]
